FAERS Safety Report 20931345 (Version 1)
Quarter: 2022Q2

REPORT INFORMATION
  Report Type: Spontaneous
  Country: US (occurrence: None)
  Receive Date: 20220608
  Receipt Date: 20220608
  Transmission Date: 20220721
  Serious: No
  Sender: FDA-Public Use
  Company Number: 2022A211770

PATIENT
  Sex: Male
  Weight: 113.4 kg

DRUGS (1)
  1. BUDESONIDE\FORMOTEROL\GLYCOPYRRONIUM [Suspect]
     Active Substance: BUDESONIDE\FORMOTEROL\GLYCOPYRRONIUM
     Dosage: 160MCG/9MCG/4.8MCG 120 INHALATION -TWO TIMES A DAY
     Route: 055
     Dates: start: 202202

REACTIONS (9)
  - Feeling abnormal [Unknown]
  - Oxygen consumption [Unknown]
  - Rash macular [Unknown]
  - Haemorrhage [Unknown]
  - Rash [Unknown]
  - Bedridden [Unknown]
  - Dyspnoea [Unknown]
  - Product use issue [Unknown]
  - Product dose omission issue [Unknown]
